FAERS Safety Report 21711228 (Version 1)
Quarter: 2022Q4

REPORT INFORMATION
  Report Type: Spontaneous
  Country: CA (occurrence: CA)
  Receive Date: 20221212
  Receipt Date: 20221212
  Transmission Date: 20230112
  Serious: Yes (Other)
  Sender: FDA-Public Use
  Company Number: CA-JNJFOC-20221220707

PATIENT
  Age: 26 Year
  Sex: Male
  Weight: 71 kg

DRUGS (3)
  1. REMICADE [Suspect]
     Active Substance: INFLIXIMAB
     Indication: Crohn^s disease
     Route: 041
  2. DESOXIMETASONE [Concomitant]
     Active Substance: DESOXIMETASONE
  3. PREDNISONE [Concomitant]
     Active Substance: PREDNISONE

REACTIONS (7)
  - Venous injury [Not Recovered/Not Resolved]
  - Anal fissure [Not Recovered/Not Resolved]
  - Acne [Not Recovered/Not Resolved]
  - Weight increased [Not Recovered/Not Resolved]
  - Pruritus [Not Recovered/Not Resolved]
  - Arthralgia [Not Recovered/Not Resolved]
  - Condition aggravated [Not Recovered/Not Resolved]
